FAERS Safety Report 4308527-8 (Version None)
Quarter: 2004Q1

REPORT INFORMATION
  Report Type: 
  Country: None (occurrence: None)
  Receive Date: 20040225
  Receipt Date: 20030109
  Transmission Date: 20041129
  Serious: Yes (Hospitalization)
  Sender: FDA-Public Use
  Company Number: WAES 0301USA00647

PATIENT
  Age: 59 Year
  Sex: Male
  Weight: 60.782 kg

DRUGS (6)
  1. ZOCOR [Suspect]
     Indication: HYPERCHOLESTEROLAEMIA
     Dosage: 10 MD/ DAILY/ PO
     Route: 048
     Dates: start: 19911001
  2. INDERAL [Concomitant]
  3. GABAPENTIN [Concomitant]
  4. LEVOTHYROXINE SODIUM [Concomitant]
  5. LITHIUM CARBONATE [Concomitant]
  6. VALPROIC ACID [Concomitant]

REACTIONS (2)
  - BLOOD CREATINE PHOSPHOKINASE INCREASED [None]
  - MYALGIA [None]
